FAERS Safety Report 12531458 (Version 1)
Quarter: 2016Q3

REPORT INFORMATION
  Report Type: Spontaneous
  Country: US (occurrence: US)
  Receive Date: 20160706
  Receipt Date: 20160706
  Transmission Date: 20161109
  Serious: No
  Sender: FDA-Public Use
  Company Number: US-MALLINCKRODT-T201601594

PATIENT
  Age: 47 Year
  Sex: Female
  Weight: 77 kg

DRUGS (5)
  1. FENTANYL. [Concomitant]
     Active Substance: FENTANYL
     Dosage: 25 MCG/HR
  2. FENTANYL. [Concomitant]
     Active Substance: FENTANYL
     Dosage: 50 MCG/HR
  3. SPIRONOLACTONE. [Concomitant]
     Active Substance: SPIRONOLACTONE
     Dosage: 100 MG
  4. GABAPENTIN. [Concomitant]
     Active Substance: GABAPENTIN
  5. OXYCODONE [Suspect]
     Active Substance: OXYCODONE
     Indication: PAIN
     Dosage: 5 MG, 1-2 TABLETS AS NEEDED
     Route: 048

REACTIONS (7)
  - Nausea [Recovering/Resolving]
  - Somnolence [Recovering/Resolving]
  - Abnormal dreams [Recovering/Resolving]
  - Head discomfort [Recovering/Resolving]
  - Malaise [Recovering/Resolving]
  - Feeling abnormal [Recovering/Resolving]
  - Euphoric mood [Recovering/Resolving]

NARRATIVE: CASE EVENT DATE: 20160424
